FAERS Safety Report 17027928 (Version 1)
Quarter: 2019Q4

REPORT INFORMATION
  Report Type: Spontaneous
  Country: US (occurrence: US)
  Receive Date: 20191010
  Receipt Date: 20191010
  Transmission Date: 20200122
  Serious: No
  Sender: FDA-Public Use
  Company Number: None

PATIENT
  Age: 10 Year
  Sex: Male
  Weight: 48 kg

DRUGS (2)
  1. ALBUTEROL 90MCG MDI [Suspect]
     Active Substance: ALBUTEROL
     Indication: ASTHMA
     Dosage: ?          OTHER DOSE:2 PUFFS;OTHER ROUTE:INHALED VIA SPACER?
     Dates: start: 20190818
  2. FLUTICASONE. [Concomitant]
     Active Substance: FLUTICASONE

REACTIONS (2)
  - Product substitution issue [None]
  - Vomiting [None]

NARRATIVE: CASE EVENT DATE: 20191010
